FAERS Safety Report 9774759 (Version 1)
Quarter: 2013Q4

REPORT INFORMATION
  Report Type: Spontaneous
  Country: US (occurrence: US)
  Receive Date: 20131220
  Receipt Date: 20131220
  Transmission Date: 20140711
  Serious: No
  Sender: FDA-Public Use
  Company Number: US-PFIZER INC-2013364124

PATIENT
  Age: 45 Year
  Sex: Female
  Weight: 124 kg

DRUGS (4)
  1. EFFEXOR XR [Suspect]
     Indication: DEPRESSION
     Dosage: 75 MG, ALTERNATE DAY
     Dates: start: 2013
  2. PROZAC [Suspect]
     Indication: DEPRESSION
     Dosage: UNK
  3. SIMVASTATIN [Concomitant]
     Indication: BLOOD CHOLESTEROL INCREASED
     Dosage: 40 MG, DAILY
  4. LIBRAX [Concomitant]
     Indication: CROHN^S DISEASE
     Dosage: UNK, 4X/DAY

REACTIONS (2)
  - Vitamin D deficiency [Unknown]
  - Panic attack [Recovered/Resolved]
